FAERS Safety Report 7092990-6 (Version None)
Quarter: 2010Q4

REPORT INFORMATION
  Report Type: 
  Country: None (occurrence: None)
  Receive Date: 20101110
  Receipt Date: 20081014
  Transmission Date: 20110411
  Serious: No
  Sender: FDA-Public Use
  Company Number: US-KINGPHARMUSA00001-K200801191

PATIENT
  Age: 14 Year
  Sex: Female

DRUGS (1)
  1. BICILLIN L-A [Suspect]
     Indication: STREPTOBACILLUS INFECTION
     Dosage: UNK, SINGLE
     Route: 030
     Dates: start: 20081014, end: 20081014

REACTIONS (2)
  - EXPIRED DRUG ADMINISTERED [None]
  - NO ADVERSE EVENT [None]
